FAERS Safety Report 9506398 (Version 1)
Quarter: 2013Q1

REPORT INFORMATION
  Report Type: Spontaneous
  Country: US (occurrence: None)
  Receive Date: 20130301
  Receipt Date: 20130301
  Transmission Date: 20140127
  Serious: Yes (Hospitalization, Other)
  Sender: FDA-Public Use
  Company Number: RB-42396-2012

PATIENT
  Sex: Female

DRUGS (4)
  1. SUBOXONE [Suspect]
     Indication: DRUG DEPENDENCE
     Dosage: 6 MG TRANSMAMMARY
     Route: 064
     Dates: start: 2011, end: 20120409
  2. BUPRENORPHINE [Suspect]
     Indication: DRUG DEPENDENCE
     Route: 064
     Dates: start: 201107, end: 20120409
  3. PRENATAL VITAMINS [Suspect]
     Indication: PREGNANCY
     Route: 064
     Dates: start: 201107, end: 20120409
  4. NICOTINE [Suspect]
     Indication: NICOTINE DEPENDENCE
     Dosage: 1/2 PACK
     Dates: start: 201107

REACTIONS (3)
  - Foetal exposure during pregnancy [None]
  - Exposure during breast feeding [None]
  - Drug withdrawal syndrome neonatal [None]
